FAERS Safety Report 13141277 (Version 2)
Quarter: 2017Q1

REPORT INFORMATION
  Report Type: Spontaneous
  Country: US (occurrence: US)
  Receive Date: 20170123
  Receipt Date: 20170127
  Transmission Date: 20170428
  Serious: No
  Sender: FDA-Public Use
  Company Number: US-UNITED THERAPEUTICS-UNT-2016-017819

PATIENT
  Age: 63 Year
  Sex: Male
  Weight: 88.89 kg

DRUGS (5)
  1. ADCIRCA [Concomitant]
     Active Substance: TADALAFIL
     Indication: PRODUCT USED FOR UNKNOWN INDICATION
  2. TYVASO [Suspect]
     Active Substance: TREPROSTINIL
     Dosage: UNK
  3. TYVASO [Suspect]
     Active Substance: TREPROSTINIL
     Dosage: 72 ?G,  (12 BREATHS)
  4. TYVASO [Suspect]
     Active Substance: TREPROSTINIL
     Dosage: 18 - 72 ?G, QID
  5. TYVASO [Suspect]
     Active Substance: TREPROSTINIL
     Indication: PULMONARY HYPERTENSION
     Dosage: 18-54 MICROGRAMS, QID
     Dates: start: 20161110

REACTIONS (20)
  - Pain in jaw [Not Recovered/Not Resolved]
  - Decreased appetite [Unknown]
  - Muscle spasms [Unknown]
  - Off label use [Unknown]
  - Fatigue [Unknown]
  - Myalgia [Unknown]
  - Irritability [Unknown]
  - Fluid retention [Recovered/Resolved]
  - Pain [Unknown]
  - Cough [Not Recovered/Not Resolved]
  - Dizziness [Unknown]
  - Blood pressure decreased [Unknown]
  - Flank pain [Unknown]
  - Oxygen saturation decreased [Unknown]
  - Pain in extremity [Not Recovered/Not Resolved]
  - Oropharyngeal pain [Unknown]
  - Headache [Not Recovered/Not Resolved]
  - Erythema [Unknown]
  - Weight increased [Unknown]
  - Flushing [Unknown]

NARRATIVE: CASE EVENT DATE: 201611
